FAERS Safety Report 9844292 (Version 1)
Quarter: 2014Q1

REPORT INFORMATION
  Report Type: Spontaneous
  Country: US (occurrence: US)
  Receive Date: 20140127
  Receipt Date: 20140127
  Transmission Date: 20141002
  Serious: Yes (Hospitalization, Other)
  Sender: FDA-Public Use
  Company Number: US-ACCORD-021400

PATIENT
  Age: 17 Year
  Sex: Female

DRUGS (6)
  1. AZATHIOPRINE [Suspect]
     Indication: IMMUNOSUPPRESSION
  2. PREDNISONE [Suspect]
     Indication: IMMUNOSUPPRESSION
  3. ENALAPRIL [Concomitant]
     Indication: HYPERTENSION
  4. AMLODIPINE [Concomitant]
     Indication: HYPERTENSION
  5. TACROLIMUS [Suspect]
     Indication: IMMUNOSUPPRESSION
  6. METOPROLOL [Concomitant]
     Indication: HYPERTENSION

REACTIONS (4)
  - Anastomotic stenosis [Unknown]
  - Posterior reversible encephalopathy syndrome [Recovered/Resolved]
  - Cytomegalovirus infection [Unknown]
  - Hypertension [Unknown]
